FAERS Safety Report 24166639 (Version 2)
Quarter: 2024Q3

REPORT INFORMATION
  Report Type: Spontaneous
  Country: JP (occurrence: JP)
  Receive Date: 20240802
  Receipt Date: 20240809
  Transmission Date: 20241017
  Serious: Yes (Other)
  Sender: RANBAXY
  Company Number: JP-SUN PHARMACEUTICAL INDUSTRIES LTD-2024R1-460019

PATIENT
  Age: 6 Decade
  Sex: Female

DRUGS (6)
  1. DOCETAXEL [Suspect]
     Active Substance: DOCETAXEL\DOCETAXEL ANHYDROUS
     Indication: Breast cancer
     Dosage: 75 MILLIGRAM/SQ. METER
     Route: 065
  2. DOCETAXEL [Suspect]
     Active Substance: DOCETAXEL\DOCETAXEL ANHYDROUS
     Indication: Myotonic dystrophy
  3. PERTUZUMAB [Suspect]
     Active Substance: PERTUZUMAB
     Indication: Breast cancer
     Dosage: UNK
     Route: 065
  4. PERTUZUMAB [Suspect]
     Active Substance: PERTUZUMAB
     Indication: Myotonic dystrophy
  5. TRASTUZUMAB [Suspect]
     Active Substance: TRASTUZUMAB
     Indication: Breast cancer
     Dosage: UNK
     Route: 065
  6. TRASTUZUMAB [Suspect]
     Active Substance: TRASTUZUMAB
     Indication: Myotonic dystrophy

REACTIONS (1)
  - Disease progression [Recovered/Resolved]
